FAERS Safety Report 15043748 (Version 1)
Quarter: 2018Q2

REPORT INFORMATION
  Report Type: Report from Study
  Country: FR (occurrence: FR)
  Receive Date: 20180621
  Receipt Date: 20180621
  Transmission Date: 20180711
  Serious: Yes (Hospitalization, Other)
  Sender: FDA-Public Use
  Company Number: FR-SHIRE-FR201822147

PATIENT

DRUGS (10)
  1. METHOTREXATE. [Suspect]
     Active Substance: METHOTREXATE
     Indication: ACUTE LYMPHOCYTIC LEUKAEMIA
     Dosage: 12 MG, D13
     Route: 037
     Dates: start: 20180331, end: 20180331
  2. METHOTREXATE. [Suspect]
     Active Substance: METHOTREXATE
     Dosage: 12 MG, D24
     Route: 037
     Dates: start: 20180411
  3. PEGASPARGASE [Suspect]
     Active Substance: PEGASPARGASE
     Indication: ACUTE LYMPHOCYTIC LEUKAEMIA
     Dosage: 840 IU, D12
     Route: 042
     Dates: start: 20180330, end: 20180330
  4. VINCRISTINE [Suspect]
     Active Substance: VINCRISTINE
     Dosage: 1 MG, D15
     Route: 042
     Dates: start: 20180402, end: 20180402
  5. PEGASPARGASE [Suspect]
     Active Substance: PEGASPARGASE
     Dosage: 840 IU, D26
     Route: 042
     Dates: start: 20180413, end: 20180413
  6. DEXAMETHASONE. [Suspect]
     Active Substance: DEXAMETHASONE
     Dosage: 2 MG, D29 TO D30
     Route: 048
     Dates: start: 20180416, end: 20180421
  7. VINCRISTINE [Suspect]
     Active Substance: VINCRISTINE
     Indication: ACUTE LYMPHOCYTIC LEUKAEMIA
     Dosage: 1 MG, D8
     Route: 042
     Dates: start: 20180326, end: 20180326
  8. VINCRISTINE [Suspect]
     Active Substance: VINCRISTINE
     Dosage: 1 MG, D22
     Route: 042
     Dates: start: 20180409, end: 20180409
  9. VINCRISTINE [Suspect]
     Active Substance: VINCRISTINE
     Dosage: 1 MG, D29
     Route: 042
     Dates: start: 20180416, end: 20180416
  10. DEXAMETHASONE. [Suspect]
     Active Substance: DEXAMETHASONE
     Indication: ACUTE LYMPHOCYTIC LEUKAEMIA
     Dosage: 4 MG, D8 TO D28
     Route: 048
     Dates: start: 20180326, end: 20180415

REACTIONS (1)
  - Escherichia sepsis [Recovered/Resolved]

NARRATIVE: CASE EVENT DATE: 20180417
